FAERS Safety Report 7745187-8 (Version None)
Quarter: 2011Q3

REPORT INFORMATION
  Report Type: 
  Country: None (occurrence: None)
  Receive Date: 20110908
  Receipt Date: 20110830
  Transmission Date: 20111222
  Serious: Yes (Hospitalization)
  Sender: FDA-Public Use
  Company Number: 2011080247

PATIENT
  Age: 56 Year
  Sex: Male
  Weight: 77.5651 kg

DRUGS (10)
  1. DIGOXIN [Concomitant]
  2. NOVOLOG MIX 70/30 [Concomitant]
  3. LUNESTA [Concomitant]
  4. BLINDED [DU-176B OR WARFARIN] [Suspect]
     Indication: THROMBOSIS PROPHYLAXIS
     Dosage: (BLINDED) (1 IN 1 D), ORAL
     Route: 048
     Dates: start: 20101007, end: 20110610
  5. TIKOSYN [Concomitant]
  6. TORSEMIDE [Suspect]
     Indication: CARDIAC FAILURE CONGESTIVE
     Dosage: 40 MG (20 MG, 2 IN 1 D), ORAL
     Route: 048
     Dates: start: 20110401, end: 20110617
  7. IRBESARTAN (IRBESARTAN) [Concomitant]
  8. TIKOSYN [Concomitant]
  9. AVAPRO [Concomitant]
  10. COREG [Concomitant]

REACTIONS (10)
  - FALL [None]
  - BLOOD PRESSURE SYSTOLIC DECREASED [None]
  - HYPOVOLAEMIA [None]
  - DIZZINESS [None]
  - SYNCOPE [None]
  - DYSPNOEA [None]
  - INCORRECT DOSE ADMINISTERED [None]
  - LACERATION [None]
  - SOFT TISSUE HAEMORRHAGE [None]
  - HEAD INJURY [None]
